FAERS Safety Report 9363439 (Version 1)
Quarter: 2013Q2

REPORT INFORMATION
  Report Type: Spontaneous
  Country: GB (occurrence: GB)
  Receive Date: 20130624
  Receipt Date: 20130624
  Transmission Date: 20140414
  Serious: Yes (Death, Congenital Anomaly, Other)
  Sender: FDA-Public Use
  Company Number: GB-ROCHE-1236156

PATIENT
  Sex: 0

DRUGS (1)
  1. ROACCUTANE [Suspect]
     Indication: PRODUCT USED FOR UNKNOWN INDICATION
     Route: 064

REACTIONS (5)
  - Congenital neurological disorder [Fatal]
  - Heart disease congenital [Fatal]
  - Congenital anomaly [Fatal]
  - Teratogenicity [Fatal]
  - Maternal exposure timing unspecified [Unknown]
